FAERS Safety Report 12646289 (Version 6)
Quarter: 2018Q1

REPORT INFORMATION
  Report Type: Spontaneous
  Country: US (occurrence: US)
  Receive Date: 20160812
  Receipt Date: 20180309
  Transmission Date: 20180508
  Serious: Yes (Hospitalization, Other)
  Sender: FDA-Public Use
  Company Number: US-009507513-1608USA004494

PATIENT
  Sex: Female
  Weight: 78.46 kg

DRUGS (1)
  1. NUVARING [Suspect]
     Active Substance: ETHINYL ESTRADIOL\ETONOGESTREL
     Indication: CONTRACEPTION
     Dosage: RING INSERTED INTO VAGINA FOR 3 WEEKS, THAN REMOVED FOR ONE WEEK
     Route: 067
     Dates: start: 201404, end: 201408

REACTIONS (10)
  - Deep vein thrombosis [Unknown]
  - Pulmonary embolism [Unknown]
  - Nausea [Unknown]
  - Menorrhagia [Unknown]
  - Muscle strain [Unknown]
  - Muscle spasms [Unknown]
  - Foot operation [Unknown]
  - Infection [Unknown]
  - Dysmenorrhoea [Unknown]
  - Acne [Unknown]

NARRATIVE: CASE EVENT DATE: 201407
